FAERS Safety Report 24926866 (Version 1)
Quarter: 2025Q1

REPORT INFORMATION
  Report Type: Spontaneous
  Country: GB (occurrence: GB)
  Receive Date: 20250205
  Receipt Date: 20250205
  Transmission Date: 20250409
  Serious: Yes (Other)
  Sender: AUROBINDO
  Company Number: GB-MHRA-31193571

PATIENT
  Sex: Male

DRUGS (3)
  1. CETIRIZINE HYDROCHLORIDE [Suspect]
     Active Substance: CETIRIZINE HYDROCHLORIDE
     Indication: Seasonal allergy
     Route: 065
  2. CARBAMAZEPINE [Concomitant]
     Active Substance: CARBAMAZEPINE
     Indication: Product use in unapproved indication
     Route: 065
  3. LIORESAL [Concomitant]
     Active Substance: BACLOFEN
     Indication: Product use in unapproved indication
     Route: 065

REACTIONS (9)
  - Contusion [Recovering/Resolving]
  - Discomfort [Recovering/Resolving]
  - Erythema [Recovering/Resolving]
  - Feeding disorder [Recovering/Resolving]
  - Gingival swelling [Recovering/Resolving]
  - Gingival bleeding [Recovering/Resolving]
  - Hot flush [Recovering/Resolving]
  - Oral pain [Recovering/Resolving]
  - Swelling [Recovering/Resolving]
